APPROVED DRUG PRODUCT: TRIFLURIDINE
Active Ingredient: TRIFLURIDINE
Strength: 1%
Dosage Form/Route: SOLUTION/DROPS;OPHTHALMIC
Application: A205438 | Product #001
Applicant: HIKMA PHARMACEUTICALS USA INC
Approved: Jul 28, 2017 | RLD: No | RS: No | Type: DISCN